FAERS Safety Report 9231189 (Version 1)
Quarter: 2013Q1

REPORT INFORMATION
  Report Type: Spontaneous
  Country: US (occurrence: None)
  Receive Date: 20121031
  Receipt Date: 20121031
  Transmission Date: 20140127
  Serious: No
  Sender: FDA-Public Use
  Company Number: PHEH2012US014599

PATIENT
  Sex: Female
  Weight: 104.3 kg

DRUGS (10)
  1. GILENYA (FTY)CAPSULE, 0.5MG [Suspect]
     Indication: MULTIPLE SCLEROSIS
     Route: 048
  2. DETROL (TOLTERODINE L-TARTRATE) [Concomitant]
  3. TRILEPTAL (OXCARBAZEPINE) [Concomitant]
  4. RANITIDINE (RANITIDINE) [Concomitant]
  5. CELEXA (CITALOPRAM HYDROBROMIDE) [Concomitant]
  6. HYDROCODONE W/APAP (HYDROCODONE, PARACETAMOL) [Concomitant]
  7. YEAST-GARD (CANDIDA ALBICANS, CANDIDA PARAPSILOSIS, PULSATILLA, PULSATILLA PRATENSIS) [Concomitant]
  8. CRANBERRY CAPSULE [Concomitant]
  9. ZONEGRAN (ZONISAMIDE) [Concomitant]
  10. WELLBUTRIN (BUPROPION HYDROCHLORIDE) [Concomitant]

REACTIONS (3)
  - Rhinorrhoea [None]
  - Nausea [None]
  - Cough [None]
